FAERS Safety Report 21496714 (Version 1)
Quarter: 2022Q4

REPORT INFORMATION
  Report Type: Spontaneous
  Country: IT (occurrence: IT)
  Receive Date: 20221022
  Receipt Date: 20221022
  Transmission Date: 20230113
  Serious: Yes (Other)
  Sender: FDA-Public Use
  Company Number: None

PATIENT
  Age: 46 Year
  Sex: Female
  Weight: 65 kg

DRUGS (4)
  1. PACLITAXEL [Suspect]
     Active Substance: PACLITAXEL
     Indication: Breast cancer recurrent
     Dosage: 139.19 MG / CYCLIC
     Route: 065
     Dates: start: 20220603, end: 20220603
  2. TAMOXIFEN CITRATE [Concomitant]
     Active Substance: TAMOXIFEN CITRATE
     Indication: Breast cancer stage IV
     Dosage: 10 MILLIGRAM DAILY; 1 TABLET 10 MG / DAY , TAMOXIFENE CITRATO
     Dates: start: 2018
  3. ONTRUZANT [Concomitant]
     Active Substance: TRASTUZUMAB-DTTB
     Indication: Breast cancer recurrent
     Dosage: 420 MG / CYCLIC
     Dates: start: 20220421
  4. PERJETA [Concomitant]
     Active Substance: PERTUZUMAB
     Indication: Breast cancer recurrent
     Dosage: 420 MG / CYCLIC
     Dates: start: 20220421

REACTIONS (4)
  - Throat tightness [Recovered/Resolved]
  - Erythema [Recovered/Resolved]
  - Dyspnoea [Recovered/Resolved]
  - Blood pressure increased [Recovered/Resolved]

NARRATIVE: CASE EVENT DATE: 20220603
